FAERS Safety Report 19945920 (Version 4)
Quarter: 2022Q1

REPORT INFORMATION
  Report Type: Spontaneous
  Country: US (occurrence: US)
  Receive Date: 20211012
  Receipt Date: 20220223
  Transmission Date: 20220423
  Serious: No
  Sender: FDA-Public Use
  Company Number: US-KARYOPHARM-2021KPT001064

PATIENT

DRUGS (7)
  1. XPOVIO [Suspect]
     Active Substance: SELINEXOR
     Indication: Plasma cell myeloma
     Dosage: 60 MG, WEEKLY
     Route: 048
     Dates: start: 20210810
  2. XPOVIO [Suspect]
     Active Substance: SELINEXOR
     Dosage: 60 MG, WEEKLY
     Route: 048
     Dates: start: 20210914, end: 202109
  3. XPOVIO [Suspect]
     Active Substance: SELINEXOR
     Dosage: 60 MG, WEEKLY
     Route: 048
     Dates: start: 20211027
  4. XPOVIO [Suspect]
     Active Substance: SELINEXOR
     Dosage: 60 MG, EVERY OTHER WEEK
     Route: 048
  5. XPOVIO [Suspect]
     Active Substance: SELINEXOR
     Dosage: 60 MG, WEEKLY
     Route: 048
  6. BORTEZOMIB [Concomitant]
     Active Substance: BORTEZOMIB
  7. DEXAMETHASONE [Concomitant]
     Active Substance: DEXAMETHASONE

REACTIONS (8)
  - Malaise [Not Recovered/Not Resolved]
  - Full blood count abnormal [Not Recovered/Not Resolved]
  - Back pain [Unknown]
  - Diarrhoea [Unknown]
  - Asthenia [Recovering/Resolving]
  - Nausea [Unknown]
  - Platelet count decreased [Not Recovered/Not Resolved]
  - Dehydration [Unknown]

NARRATIVE: CASE EVENT DATE: 20210801
